FAERS Safety Report 9644029 (Version 2)
Quarter: 2014Q1

REPORT INFORMATION
  Report Type: Spontaneous
  Country: IT (occurrence: IT)
  Receive Date: 20131024
  Receipt Date: 20140121
  Transmission Date: 20141002
  Serious: Yes (Hospitalization)
  Sender: FDA-Public Use
  Company Number: PHHY2013IT117156

PATIENT
  Age: 58 Year
  Sex: Male

DRUGS (4)
  1. AMOXICILLIN-CLAVULANIC ACID [Suspect]
     Indication: PROPHYLAXIS
     Dosage: 1 DF, ONCE/SINGLE
     Route: 048
     Dates: start: 201201
  2. NEBIVOLOL/HYDROCHLOROTHIAZIDE [Concomitant]
     Indication: HYPERTENSION
     Dosage: 15 MG, UNK
  3. DOXAZOSIN [Concomitant]
     Dosage: 2 MG, UNK
  4. TAPAZOLE [Concomitant]
     Indication: HYPERTHYROIDISM
     Dosage: 5 MG, UNK

REACTIONS (7)
  - Kounis syndrome [Recovered/Resolved]
  - Anaphylactic reaction [Recovered/Resolved]
  - Dyspnoea [Recovered/Resolved]
  - Chest pain [Recovered/Resolved]
  - Rash [Recovered/Resolved]
  - Wheezing [Recovered/Resolved]
  - Electrocardiogram ST segment elevation [Recovered/Resolved]
